FAERS Safety Report 6253998-3 (Version None)
Quarter: 2009Q3

REPORT INFORMATION
  Report Type: 
  Country: None (occurrence: None)
  Receive Date: 20090702
  Receipt Date: 20090619
  Transmission Date: 20100115
  Serious: Yes (Congenital Anomaly)
  Sender: FDA-Public Use
  Company Number: FR-ROCHE-568561

PATIENT
  Sex: Male
  Weight: 2.6 kg

DRUGS (9)
  1. COPEGUS [Suspect]
     Dosage: GESTATION WEEK: 17
     Route: 064
     Dates: end: 20070305
  2. DEPAKENE [Suspect]
     Indication: EPILEPSY
     Dates: start: 19970101
  3. VIRAFERONPEG [Suspect]
     Indication: HEPATITIS C
     Dosage: FORM INJECTABLE SOLUTION
  4. LAMICTAL [Suspect]
     Indication: EPILEPSY
  5. DEROXAT [Suspect]
     Indication: DRUG USE FOR UNKNOWN INDICATION
  6. PEG-INTERFERON ALFA NOS [Suspect]
     Indication: DRUG USE FOR UNKNOWN INDICATION
     Dosage: DRUG NAME: PEGINTERFERON ALPHA
     Route: 064
  7. LEVOTHYROX [Concomitant]
     Indication: HYPOTHYROIDISM
  8. DOLIPRANE [Concomitant]
  9. CYSTINE-B6 [Concomitant]

REACTIONS (1)
  - SKULL MALFORMATION [None]
